FAERS Safety Report 16299433 (Version 1)
Quarter: 2019Q2

REPORT INFORMATION
  Report Type: Spontaneous
  Country: US (occurrence: US)
  Receive Date: 20190510
  Receipt Date: 20190510
  Transmission Date: 20190711
  Serious: No
  Sender: FDA-Public Use
  Company Number: US-ASTRAZENECA-2019SE58294

PATIENT
  Age: 811 Month
  Sex: Female
  Weight: 93 kg

DRUGS (1)
  1. BYDUREON BCISE [Suspect]
     Active Substance: EXENATIDE
     Indication: WEIGHT DECREASED
     Route: 058
     Dates: start: 201811

REACTIONS (8)
  - Impaired gastric emptying [Not Recovered/Not Resolved]
  - Headache [Not Recovered/Not Resolved]
  - Device leakage [Unknown]
  - Sinusitis [Not Recovered/Not Resolved]
  - Product use in unapproved indication [Unknown]
  - Injection site haemorrhage [Unknown]
  - Off label use [Unknown]
  - Incorrect dose administered [Unknown]

NARRATIVE: CASE EVENT DATE: 201811
